FAERS Safety Report 8628963 (Version 3)
Quarter: 2014Q1

REPORT INFORMATION
  Report Type: Spontaneous
  Country: US (occurrence: US)
  Receive Date: 20120621
  Receipt Date: 20140219
  Transmission Date: 20141002
  Serious: Yes (Hospitalization)
  Sender: FDA-Public Use
  Company Number: US-ASTRAZENECA-2012SE35440

PATIENT
  Age: 58 Year
  Sex: Female

DRUGS (1)
  1. NEXIUM [Suspect]
     Route: 048

REACTIONS (7)
  - Ulcer [Unknown]
  - Abdominal distension [Unknown]
  - Oesophageal disorder [Unknown]
  - Weight decreased [Unknown]
  - Gastroenteritis viral [Unknown]
  - Malaise [Unknown]
  - Drug dose omission [Unknown]
